FAERS Safety Report 25331422 (Version 2)
Quarter: 2025Q3

REPORT INFORMATION
  Report Type: Spontaneous
  Country: CN (occurrence: CN)
  Receive Date: 20250519
  Receipt Date: 20250804
  Transmission Date: 20251020
  Serious: Yes (Hospitalization, Other)
  Sender: PFIZER
  Company Number: CN-PFIZER INC-PV202400134873

PATIENT
  Age: 22 Year
  Sex: Male

DRUGS (50)
  1. XYNTHA [Suspect]
     Active Substance: MOROCTOCOG ALFA
     Indication: Factor VIII deficiency
     Dates: start: 20230508
  2. XYNTHA [Suspect]
     Active Substance: MOROCTOCOG ALFA
     Dosage: 1000 IU, 2X/DAY (Q12H)
     Route: 042
     Dates: start: 20230605
  3. XYNTHA [Suspect]
     Active Substance: MOROCTOCOG ALFA
     Dosage: 1000 IU, 2X/DAY (Q12H)
     Route: 042
     Dates: start: 20230613
  4. XYNTHA [Suspect]
     Active Substance: MOROCTOCOG ALFA
     Dosage: 1000 IU, 2X/DAY (Q12H)
     Route: 040
     Dates: start: 20230624, end: 20230926
  5. XYNTHA [Suspect]
     Active Substance: MOROCTOCOG ALFA
     Dosage: 1000 IU, 2X/DAY (Q12H)
     Route: 042
     Dates: start: 20231016, end: 20231030
  6. XYNTHA [Suspect]
     Active Substance: MOROCTOCOG ALFA
     Dosage: 1000 IU, 2X/DAY (Q12H)
     Route: 040
     Dates: start: 20231115, end: 20231128
  7. XYNTHA [Suspect]
     Active Substance: MOROCTOCOG ALFA
     Dosage: 1000 IU, 2X/DAY (Q12H)
     Route: 042
     Dates: start: 20231213
  8. XYNTHA [Suspect]
     Active Substance: MOROCTOCOG ALFA
     Dosage: 1000 IU, 2X/DAY (Q12H)
     Route: 040
     Dates: start: 20231226, end: 20240123
  9. XYNTHA [Suspect]
     Active Substance: MOROCTOCOG ALFA
     Route: 042
     Dates: start: 20240125
  10. XYNTHA [Suspect]
     Active Substance: MOROCTOCOG ALFA
     Route: 042
     Dates: start: 20240129
  11. XYNTHA [Suspect]
     Active Substance: MOROCTOCOG ALFA
     Route: 042
     Dates: start: 20240130, end: 20240131
  12. XYNTHA [Suspect]
     Active Substance: MOROCTOCOG ALFA
     Route: 042
     Dates: start: 20240201
  13. XYNTHA [Suspect]
     Active Substance: MOROCTOCOG ALFA
     Route: 042
     Dates: start: 20240201, end: 20240203
  14. XYNTHA [Suspect]
     Active Substance: MOROCTOCOG ALFA
     Route: 042
     Dates: start: 20240203
  15. XYNTHA [Suspect]
     Active Substance: MOROCTOCOG ALFA
     Route: 042
     Dates: start: 20240204
  16. XYNTHA [Suspect]
     Active Substance: MOROCTOCOG ALFA
     Route: 042
     Dates: start: 20240204
  17. XYNTHA [Suspect]
     Active Substance: MOROCTOCOG ALFA
     Route: 042
     Dates: start: 20240205
  18. XYNTHA [Suspect]
     Active Substance: MOROCTOCOG ALFA
     Route: 042
     Dates: start: 20240205, end: 20240207
  19. XYNTHA [Suspect]
     Active Substance: MOROCTOCOG ALFA
     Dosage: 1000 IU, 2X/DAY (Q12H)
     Route: 040
     Dates: start: 20240220, end: 20240229
  20. XYNTHA [Suspect]
     Active Substance: MOROCTOCOG ALFA
     Dosage: 1000 IU, 2X/DAY (Q12H)
     Route: 042
     Dates: start: 20240314, end: 20240412
  21. XYNTHA [Suspect]
     Active Substance: MOROCTOCOG ALFA
     Dosage: 1000 IU, 2X/DAY (Q12H)
     Route: 040
     Dates: start: 20240426, end: 20240528
  22. XYNTHA [Suspect]
     Active Substance: MOROCTOCOG ALFA
     Dosage: 1000 IU, 2X/DAY (Q12H)
     Route: 042
     Dates: start: 20240614
  23. XYNTHA [Suspect]
     Active Substance: MOROCTOCOG ALFA
     Dosage: 1000 IU, 2X/DAY (Q12H)
     Route: 042
     Dates: start: 20240624
  24. XYNTHA [Suspect]
     Active Substance: MOROCTOCOG ALFA
     Dosage: 1000 IU, 2X/DAY (BID)
     Route: 042
     Dates: start: 20240713
  25. XYNTHA [Suspect]
     Active Substance: MOROCTOCOG ALFA
     Dosage: 1000 IU, 2X/DAY (Q12H)
     Route: 040
     Dates: start: 20240723, end: 20240831
  26. XYNTHA [Suspect]
     Active Substance: MOROCTOCOG ALFA
     Route: 042
     Dates: start: 20240903, end: 20240905
  27. XYNTHA [Suspect]
     Active Substance: MOROCTOCOG ALFA
     Route: 042
     Dates: start: 20240906
  28. XYNTHA [Suspect]
     Active Substance: MOROCTOCOG ALFA
     Route: 042
     Dates: start: 20240906
  29. XYNTHA [Suspect]
     Active Substance: MOROCTOCOG ALFA
     Dosage: 1000 IU, 2X/DAY (Q 12 H)
     Route: 042
     Dates: start: 20240907
  30. XYNTHA [Suspect]
     Active Substance: MOROCTOCOG ALFA
     Route: 042
     Dates: start: 20240907
  31. XYNTHA [Suspect]
     Active Substance: MOROCTOCOG ALFA
     Dosage: 1000 IU, 2X/DAY (Q 12 H)
     Route: 042
     Dates: start: 20240908
  32. XYNTHA [Suspect]
     Active Substance: MOROCTOCOG ALFA
     Dosage: 1000 IU, 2X/DAY (Q 12 H)
     Route: 040
     Dates: start: 20240924
  33. XYNTHA [Suspect]
     Active Substance: MOROCTOCOG ALFA
     Dosage: 1000 IU, 2X/DAY (Q 12 H)
     Route: 040
     Dates: start: 20240930
  34. XYNTHA [Suspect]
     Active Substance: MOROCTOCOG ALFA
     Dosage: 1000 IU, 2X/DAY (Q 12 H)
     Route: 040
     Dates: start: 20241016
  35. XYNTHA [Suspect]
     Active Substance: MOROCTOCOG ALFA
     Dosage: 1000 IU, Q12H
     Route: 040
     Dates: start: 20241114
  36. XYNTHA [Suspect]
     Active Substance: MOROCTOCOG ALFA
     Dosage: 1000 IU, Q12H
     Route: 040
     Dates: start: 20241116
  37. XYNTHA [Suspect]
     Active Substance: MOROCTOCOG ALFA
     Dosage: 1000 IU, Q12H
     Route: 040
     Dates: start: 20241206
  38. XYNTHA [Suspect]
     Active Substance: MOROCTOCOG ALFA
     Dosage: 1000 IU, Q12H
     Route: 042
     Dates: start: 20241223
  39. XYNTHA [Suspect]
     Active Substance: MOROCTOCOG ALFA
     Dosage: 1000 IU, BID
     Route: 042
     Dates: start: 20250114
  40. XYNTHA [Suspect]
     Active Substance: MOROCTOCOG ALFA
     Dosage: 1000 IU, BID
     Route: 042
     Dates: start: 20250127
  41. XYNTHA [Suspect]
     Active Substance: MOROCTOCOG ALFA
     Dosage: 500 IU, BID
     Route: 042
     Dates: start: 20250127
  42. XYNTHA [Suspect]
     Active Substance: MOROCTOCOG ALFA
     Dosage: 1000 IU, Q12H
     Route: 040
     Dates: start: 20250213
  43. XYNTHA [Suspect]
     Active Substance: MOROCTOCOG ALFA
     Dosage: 1000 IU, Q12H
     Route: 040
     Dates: start: 20250228
  44. XYNTHA [Suspect]
     Active Substance: MOROCTOCOG ALFA
     Dosage: 1000 IU, Q12H
     Route: 040
     Dates: start: 20250311
  45. XYNTHA [Suspect]
     Active Substance: MOROCTOCOG ALFA
     Dosage: 1000 IU, Q12H
     Route: 042
     Dates: start: 20250319
  46. XYNTHA [Suspect]
     Active Substance: MOROCTOCOG ALFA
     Dosage: 1000 IU, Q12H
     Route: 042
     Dates: start: 20250331
  47. XYNTHA [Suspect]
     Active Substance: MOROCTOCOG ALFA
     Dosage: 1000 IU, Q12H
     Route: 040
     Dates: start: 20250412
  48. XYNTHA [Suspect]
     Active Substance: MOROCTOCOG ALFA
     Route: 042
     Dates: start: 20250416
  49. XYNTHA [Suspect]
     Active Substance: MOROCTOCOG ALFA
     Route: 042
     Dates: start: 20250418
  50. XYNTHA [Suspect]
     Active Substance: MOROCTOCOG ALFA
     Route: 042
     Dates: start: 20250418

REACTIONS (7)
  - Faecal occult blood positive [Unknown]
  - Coagulation factor VIII level decreased [Recovered/Resolved]
  - Arthralgia [Unknown]
  - Joint swelling [Unknown]
  - Cartilage injury [Unknown]
  - Ecchymosis [Unknown]
  - Peripheral swelling [Unknown]

NARRATIVE: CASE EVENT DATE: 20240905
